FAERS Safety Report 5336823-4 (Version None)
Quarter: 2007Q2

REPORT INFORMATION
  Report Type: 
  Country: None (occurrence: None)
  Receive Date: 20070524
  Receipt Date: 20070524
  Transmission Date: 20071010
  Serious: Yes (Other)
  Sender: FDA-Public Use
  Company Number: None

PATIENT
  Age: 46 Year
  Sex: Male
  Weight: 76.5 kg

DRUGS (1)
  1. BACTRIM DS [Suspect]
     Indication: FOLLICULITIS
     Dosage: 1 PO BID
     Route: 048
     Dates: start: 20070126

REACTIONS (5)
  - FLUSHING [None]
  - MYALGIA [None]
  - NAUSEA [None]
  - PYREXIA [None]
  - VOMITING [None]
